FAERS Safety Report 10575992 (Version 1)
Quarter: 2014Q4

REPORT INFORMATION
  Report Type: Report from Study
  Country: US (occurrence: GB)
  Receive Date: 20141111
  Receipt Date: 20141111
  Transmission Date: 20150529
  Serious: Yes (Death)
  Sender: FDA-Public Use
  Company Number: GB-CELGENE-GBR-2014110334

PATIENT
  Age: 74 Year

DRUGS (1)
  1. AZACITIDINE. [Suspect]
     Active Substance: AZACITIDINE
     Indication: MYELODYSPLASTIC SYNDROME
     Route: 041
     Dates: start: 201406, end: 201408

REACTIONS (2)
  - Myelodysplastic syndrome [Unknown]
  - Death [Fatal]
